FAERS Safety Report 4790332-X (Version None)
Quarter: 2005Q4

REPORT INFORMATION
  Report Type: 
  Country: None (occurrence: None)
  Receive Date: 20051005
  Receipt Date: 20051005
  Transmission Date: 20060501
  Serious: Yes (Life-Threatening)
  Sender: FDA-Public Use
  Company Number: None

PATIENT
  Age: 80 Year
  Sex: Male

DRUGS (12)
  1. VANCOMYCIN [Suspect]
     Indication: PNEUMONIA ASPIRATION
     Dosage: DOSED BY LEVELS
     Dates: start: 20040727, end: 20040809
  2. CEFEPIME [Concomitant]
  3. FUROSEMIDE [Concomitant]
  4. HYDRALAZINE [Concomitant]
  5. LANSOPRAZOLE [Concomitant]
  6. ISOSORBIDE MONONITRATE [Concomitant]
  7. LOPRESSOR [Concomitant]
  8. LEVETIRACETAM [Concomitant]
  9. METOPROLOL [Concomitant]
  10. METRONIDAZOLE [Concomitant]
  11. PHENYTOIN [Concomitant]
  12. NICARDIPINE HCL [Concomitant]

REACTIONS (2)
  - DERMATITIS BULLOUS [None]
  - LINEAR IGA DISEASE [None]
